FAERS Safety Report 24654844 (Version 1)
Quarter: 2024Q4

REPORT INFORMATION
  Report Type: Spontaneous
  Country: US (occurrence: US)
  Receive Date: 20241122
  Receipt Date: 20241122
  Transmission Date: 20250115
  Serious: Yes (Death, Hospitalization, Other)
  Sender: PURDUE
  Company Number: US-PURDUE-USA-2024-0313454

PATIENT
  Age: 43 Year
  Sex: Female

DRUGS (5)
  1. DRONABINOL [Suspect]
     Active Substance: DRONABINOL
     Indication: Endometriosis
     Dosage: UNK
     Route: 048
  2. CAFFEINE [Suspect]
     Active Substance: CAFFEINE
     Indication: Product used for unknown indication
     Dosage: UNK
     Route: 065
  3. METHYL ALCOHOL [Suspect]
     Active Substance: METHYL ALCOHOL
     Indication: Product used for unknown indication
     Dosage: UNK
     Route: 065
  4. PROPYLENE GLYCOL [Suspect]
     Active Substance: PROPYLENE GLYCOL
     Indication: Product used for unknown indication
     Dosage: UNK
     Route: 065
  5. ETOMIDATE [Suspect]
     Active Substance: ETOMIDATE
     Indication: Product used for unknown indication
     Dosage: UNK
     Route: 065

REACTIONS (14)
  - Pneumatosis intestinalis [Fatal]
  - Gastrointestinal ischaemia [Fatal]
  - Brain herniation [Fatal]
  - Brain oedema [Fatal]
  - Toxicity to various agents [Fatal]
  - Decerebrate posture [Unknown]
  - Cardiac arrest [Unknown]
  - Shock [Unknown]
  - Mental status changes [Unknown]
  - Renal failure [Unknown]
  - Livedo reticularis [Unknown]
  - Unresponsive to stimuli [Unknown]
  - Hypotension [Unknown]
  - Drug screen positive [Unknown]
